FAERS Safety Report 8315748-6 (Version None)
Quarter: 2012Q2

REPORT INFORMATION
  Report Type: 
  Country: None (occurrence: None)
  Receive Date: 20120426
  Receipt Date: 20120416
  Transmission Date: 20120825
  Serious: Yes (Other)
  Sender: FDA-Public Use
  Company Number: US-RB-039444-12

PATIENT
  Age: 50 Year
  Sex: Female

DRUGS (6)
  1. SUBOXONE [Suspect]
     Route: 060
     Dates: start: 20110401, end: 20110901
  2. LEXAPRO [Concomitant]
     Indication: DEPRESSION
     Dosage: UNKNOWN DOSAGE DETAILS
     Route: 065
  3. CRESTOR [Concomitant]
     Indication: BLOOD CHOLESTEROL INCREASED
     Dosage: UNKNOWN DOSAGE DETAILS - DAILY
     Route: 065
  4. BLOOD PRESSURE MEDICATIONS [Concomitant]
     Indication: HYPERTENSION
     Dosage: UNKNOWN DOSAGE DETAILS- DAILY
     Route: 065
  5. SUBOXONE [Suspect]
     Indication: DRUG DEPENDENCE
     Dosage: UNKNOWN DOSAGE DETAILS
     Route: 060
  6. SUBOXONE [Suspect]
     Indication: DRUG DEPENDENCE
     Dosage: VARIOUS TAPERED DOSES
     Route: 065
     Dates: start: 20110901

REACTIONS (7)
  - NAUSEA [None]
  - JUGULAR VEIN THROMBOSIS [None]
  - DRUG WITHDRAWAL SYNDROME [None]
  - MYOCARDIAL INFARCTION [None]
  - UNDERDOSE [None]
  - CEREBROVASCULAR ACCIDENT [None]
  - WRONG TECHNIQUE IN DRUG USAGE PROCESS [None]
